FAERS Safety Report 9384160 (Version 1)
Quarter: 2013Q3

REPORT INFORMATION
  Report Type: Spontaneous
  Country: US (occurrence: None)
  Receive Date: 20130702
  Receipt Date: 20130702
  Transmission Date: 20140515
  Serious: Yes (Other)
  Sender: FDA-Public Use
  Company Number: None

PATIENT
  Age: 77 Year
  Sex: Female
  Weight: 52.62 kg

DRUGS (1)
  1. MIRTAZAPINE [Suspect]
     Dates: start: 201303

REACTIONS (4)
  - Weight increased [None]
  - Depression [None]
  - Anger [None]
  - Crying [None]
